FAERS Safety Report 26203359 (Version 1)
Quarter: 2025Q4

REPORT INFORMATION
  Report Type: Spontaneous
  Country: EU (occurrence: EU)
  Receive Date: 20251226
  Receipt Date: 20251226
  Transmission Date: 20260118
  Serious: Yes (Hospitalization, Other)
  Sender: ELI LILLY AND COMPANY
  Company Number: None

PATIENT
  Age: 49 Year
  Sex: Male
  Weight: 88 kg

DRUGS (5)
  1. TALTZ [Suspect]
     Active Substance: IXEKIZUMAB
     Indication: Ankylosing spondylitis
     Dosage: 80 MG, MONTHLY (1/M)
     Route: 058
     Dates: start: 202306, end: 202511
  2. COSENTYX [Concomitant]
     Active Substance: SECUKINUMAB
     Indication: Ankylosing spondylitis
     Dosage: 150 MG, MONTHLY (1/M)
     Route: 058
     Dates: start: 201907, end: 202012
  3. COSENTYX [Concomitant]
     Active Substance: SECUKINUMAB
     Dosage: 300 MG, MONTHLY (1/M)
     Route: 058
     Dates: start: 202101, end: 202305
  4. CIMZIA [Concomitant]
     Active Substance: CERTOLIZUMAB PEGOL
     Indication: Ankylosing spondylitis
     Dosage: UNK UNK, UNKNOWN
     Route: 058
     Dates: start: 201408, end: 201907
  5. REMICADE [Concomitant]
     Active Substance: INFLIXIMAB
     Indication: Ankylosing spondylitis
     Dosage: 5.8 MG/KG, UNKNOWN
     Route: 042
     Dates: end: 201407

REACTIONS (1)
  - Gastrointestinal neuroendocrine tumour [Recovered/Resolved with Sequelae]

NARRATIVE: CASE EVENT DATE: 20251101
